FAERS Safety Report 19042631 (Version 2)
Quarter: 2021Q2

REPORT INFORMATION
  Report Type: Report from Study
  Country: MX (occurrence: MX)
  Receive Date: 20210322
  Receipt Date: 20210401
  Transmission Date: 20210717
  Serious: Yes (Hospitalization)
  Sender: FDA-Public Use
  Company Number: NVSC2021MX056020

PATIENT
  Age: 75 Year
  Sex: Male
  Weight: 80 kg

DRUGS (1)
  1. EXFORGE [Suspect]
     Active Substance: AMLODIPINE BESYLATE\VALSARTAN
     Indication: HYPERTENSION
     Dosage: 1 DF, QD (MORE THAN 5 YEARS AGO)
     Route: 048

REACTIONS (3)
  - Pyrexia [Recovered/Resolved]
  - Nasopharyngitis [Recovered/Resolved]
  - COVID-19 [Recovered/Resolved]

NARRATIVE: CASE EVENT DATE: 20210101
